FAERS Safety Report 13950871 (Version 3)
Quarter: 2018Q4

REPORT INFORMATION
  Report Type: Spontaneous
  Country: US (occurrence: US)
  Receive Date: 20170908
  Receipt Date: 20181105
  Transmission Date: 20190204
  Serious: No
  Sender: FDA-Public Use
  Company Number: US-JAZZ-2017-US-009939

PATIENT
  Sex: Female

DRUGS (27)
  1. XYREM [Suspect]
     Active Substance: SODIUM OXYBATE
     Dosage: 5G, QD
     Route: 048
     Dates: start: 201602, end: 2017
  2. LIDODERM [Concomitant]
     Active Substance: LIDOCAINE
  3. MELATONIN [Concomitant]
     Active Substance: MELATONIN
  4. ACETAZOLAMIDE. [Concomitant]
     Active Substance: ACETAZOLAMIDE
  5. NUVIGIL [Concomitant]
     Active Substance: ARMODAFINIL
  6. DICLOFENAC SODIUM. [Concomitant]
     Active Substance: DICLOFENAC SODIUM
  7. GABAPENTIN. [Concomitant]
     Active Substance: GABAPENTIN
  8. XYREM [Suspect]
     Active Substance: SODIUM OXYBATE
     Indication: NARCOLEPSY
     Dosage: 2.25G, BID
     Route: 048
     Dates: start: 201307, end: 201308
  9. DEPO-PROVERA [Concomitant]
     Active Substance: MEDROXYPROGESTERONE ACETATE
  10. ADDERALL [Concomitant]
     Active Substance: AMPHETAMINE ASPARTATE\AMPHETAMINE SULFATE\DEXTROAMPHETAMINE SACCHARATE\DEXTROAMPHETAMINE SULFATE
  11. NAPROXEN SODIUM. [Concomitant]
     Active Substance: NAPROXEN SODIUM
  12. ESCITALOPRAM [Concomitant]
     Active Substance: ESCITALOPRAM OXALATE
  13. CLONAZEPAM. [Concomitant]
     Active Substance: CLONAZEPAM
  14. EFFEXOR [Concomitant]
     Active Substance: VENLAFAXINE HYDROCHLORIDE
  15. HYDROCODONE BITARTRATE, PARACETAMOL [Concomitant]
     Active Substance: ACETAMINOPHEN\HYDROCODONE BITARTRATE
  16. KETOCONAZOLE. [Concomitant]
     Active Substance: KETOCONAZOLE
  17. SUMATRIPTAN SUCCINATE. [Concomitant]
     Active Substance: SUMATRIPTAN SUCCINATE
  18. NORCO [Concomitant]
     Active Substance: ACETAMINOPHEN\HYDROCODONE BITARTRATE
  19. IBUPROFEN SODIUM. [Concomitant]
     Active Substance: IBUPROFEN SODIUM
  20. TRAMADOL HCL [Concomitant]
     Active Substance: TRAMADOL HYDROCHLORIDE
  21. TYLENOL 8HR [Concomitant]
     Active Substance: ACETAMINOPHEN
  22. TRAMADOL. [Concomitant]
     Active Substance: TRAMADOL
  23. MODAFINIL. [Concomitant]
     Active Substance: MODAFINIL
  24. METFORMIN HCL [Concomitant]
     Active Substance: METFORMIN HYDROCHLORIDE
  25. XYREM [Suspect]
     Active Substance: SODIUM OXYBATE
     Indication: CATAPLEXY
     Dosage: DOSE ADJUSTMENT
     Route: 048
     Dates: start: 201308, end: 201602
  26. XYREM [Suspect]
     Active Substance: SODIUM OXYBATE
     Dosage: 4G, QD
     Route: 048
     Dates: start: 201602, end: 2017
  27. HYDROCHLOROTHIAZIDE. [Concomitant]
     Active Substance: HYDROCHLOROTHIAZIDE

REACTIONS (1)
  - Exposure during pregnancy [Unknown]
